FAERS Safety Report 6424733-0 (Version None)
Quarter: 2009Q4

REPORT INFORMATION
  Report Type: 
  Country: None (occurrence: None)
  Receive Date: 20091103
  Receipt Date: 20091022
  Transmission Date: 20100525
  Serious: Yes (Life-Threatening)
  Sender: FDA-Public Use
  Company Number: JP-ASTRAZENECA-2009SE21789

PATIENT
  Sex: Female
  Weight: 49 kg

DRUGS (6)
  1. BLOPRESS [Suspect]
     Indication: HYPERTENSION
     Route: 048
     Dates: start: 20051014, end: 20051209
  2. BLOPRESS [Suspect]
     Route: 048
     Dates: start: 20051210, end: 20091017
  3. CONIEL [Suspect]
     Indication: HYPERTENSION
     Route: 048
     Dates: start: 20010821, end: 20050915
  4. CONIEL [Suspect]
     Route: 048
     Dates: start: 20050916, end: 20051223
  5. CONIEL [Suspect]
     Route: 048
     Dates: start: 20051224, end: 20091017
  6. CARDENALIN [Suspect]
     Route: 048
     Dates: start: 20060203, end: 20091017

REACTIONS (1)
  - PANCYTOPENIA [None]
